FAERS Safety Report 16355216 (Version 6)
Quarter: 2020Q3

REPORT INFORMATION
  Report Type: Report from Study
  Country: None (occurrence: FR)
  Receive Date: 20190524
  Receipt Date: 20200820
  Transmission Date: 20201102
  Serious: Yes (Death, Hospitalization, Other)
  Sender: FDA-Public Use
  Company Number: FR-ABBVIE-19K-056-2788181-00

PATIENT
  Age: 66 Year
  Sex: Female
  Weight: 54 kg

DRUGS (17)
  1. VENCLYXTO [Suspect]
     Active Substance: VENETOCLAX
     Route: 048
     Dates: start: 20181112, end: 20190726
  2. CEFOTAXIME [Concomitant]
     Active Substance: CEFOTAXIME SODIUM
     Indication: LUNG DISORDER
     Dates: start: 20190109, end: 20190116
  3. WELLVONE [Concomitant]
     Active Substance: ATOVAQUONE
     Indication: PRODUCT USED FOR UNKNOWN INDICATION
     Dates: start: 20190109, end: 20190116
  4. AMOXICILLINE [Concomitant]
     Active Substance: AMOXICILLIN
     Indication: BRONCHITIS
     Dates: start: 20190412, end: 20190415
  5. ROVAMYCINE [Concomitant]
     Active Substance: SPIRAMYCIN
     Indication: LUNG DISORDER
     Dates: start: 20190109, end: 20190123
  6. CEFTRIAXONE. [Concomitant]
     Active Substance: CEFTRIAXONE
     Indication: LUNG DISORDER
     Dates: start: 20190117, end: 20190123
  7. ZELITREX [Concomitant]
     Active Substance: VALACYCLOVIR HYDROCHLORIDE
     Indication: PRODUCT USED FOR UNKNOWN INDICATION
     Dates: start: 20181022
  8. VENCLYXTO [Suspect]
     Active Substance: VENETOCLAX
     Indication: CHRONIC LYMPHOCYTIC LEUKAEMIA
     Route: 048
     Dates: start: 20181015, end: 20181021
  9. VENCLYXTO [Suspect]
     Active Substance: VENETOCLAX
     Route: 048
     Dates: start: 20181029, end: 20181104
  10. VENCLYXTO [Suspect]
     Active Substance: VENETOCLAX
     Route: 048
     Dates: start: 20181105, end: 20181111
  11. SMECTA [Concomitant]
     Active Substance: MONTMORILLONITE
     Indication: DIARRHOEA
     Dates: start: 20181123, end: 201811
  12. FLECAINE [Concomitant]
     Active Substance: FLECAINIDE
     Indication: VENTRICULAR EXTRASYSTOLES
  13. VENCLYXTO [Suspect]
     Active Substance: VENETOCLAX
     Route: 048
     Dates: start: 20181022, end: 20181028
  14. CIFLOX [Concomitant]
     Active Substance: CIPROFLOXACIN
     Indication: BRONCHITIS
     Dates: start: 20190412, end: 20190418
  15. AUGMENTIN [Concomitant]
     Active Substance: AMOXICILLIN\CLAVULANATE POTASSIUM
     Indication: BRONCHITIS
     Dates: start: 20181130, end: 201812
  16. ZINNAT [Concomitant]
     Active Substance: CEFUROXIME
     Indication: PYREXIA
     Dates: start: 20190412, end: 20190418
  17. PRIVIGEN [Concomitant]
     Active Substance: HUMAN IMMUNOGLOBULIN G
     Indication: CHRONIC LYMPHOCYTIC LEUKAEMIA
     Dates: start: 2015

REACTIONS (11)
  - Asthenia [Recovered/Resolved]
  - Diarrhoea [Recovered/Resolved]
  - Acute myeloid leukaemia [Fatal]
  - Lung disorder [Recovered/Resolved]
  - Bronchitis [Recovered/Resolved with Sequelae]
  - Lung disorder [Fatal]
  - Pain in extremity [Recovered/Resolved]
  - Cough [Recovered/Resolved]
  - Arthralgia [Recovered/Resolved]
  - Nausea [Recovered/Resolved]
  - Neutropenia [Recovered/Resolved]

NARRATIVE: CASE EVENT DATE: 20181023
